FAERS Safety Report 16034122 (Version 1)
Quarter: 2019Q1

REPORT INFORMATION
  Report Type: Spontaneous
  Country: US (occurrence: US)
  Receive Date: 20190305
  Receipt Date: 20190305
  Transmission Date: 20190418
  Serious: No
  Sender: FDA-Public Use
  Company Number: US-IMPAX LABORATORIES, LLC-2018-IPXL-02739

PATIENT
  Age: 69 Year
  Sex: Female
  Weight: 58 kg

DRUGS (10)
  1. RYTARY [Suspect]
     Active Substance: CARBIDOPA\LEVODOPA
     Dosage: 36.25/145 MG, ONE CAPSULE AT 8AM, 2 CAPSULES AT 2 PM, 1 CAPSULE AT 6 PM, AND 1 CAPSULE AT BEDTIME
     Route: 048
     Dates: start: 20180803
  2. RYTARY [Suspect]
     Active Substance: CARBIDOPA\LEVODOPA
     Indication: PARKINSON^S DISEASE
     Dosage: 23.75/95 MG, ONE CAPSULE AT 8AM AND 1 CAPSULE AT 6 PM
     Route: 048
     Dates: start: 20180803
  3. EFFEXOR [Concomitant]
     Active Substance: VENLAFAXINE HYDROCHLORIDE
     Indication: ANXIETY
     Dosage: 37.5 MG, BID
     Route: 048
     Dates: start: 201807
  4. PROPRANOLOL [Concomitant]
     Active Substance: PROPRANOLOL HYDROCHLORIDE
     Indication: PARKINSON^S DISEASE
     Dosage: 10 MG, QD
     Route: 048
  5. KLONOPIN [Concomitant]
     Active Substance: CLONAZEPAM
     Indication: ANXIETY
     Dosage: 5 MG, QD
     Route: 048
  6. PROGESTERONE. [Concomitant]
     Active Substance: PROGESTERONE
     Indication: SUPPLEMENTATION THERAPY
     Dosage: UNK
     Route: 048
  7. EFFEXOR [Concomitant]
     Active Substance: VENLAFAXINE HYDROCHLORIDE
     Indication: DEPRESSION
  8. KLONOPIN [Concomitant]
     Active Substance: CLONAZEPAM
     Indication: DEPRESSION
  9. ASPIRIN. [Concomitant]
     Active Substance: ASPIRIN
     Indication: CARDIAC DISORDER
     Dosage: 81 MG, QD
     Route: 048
  10. ESTROGEN [Concomitant]
     Active Substance: ESTROGENS
     Indication: SUPPLEMENTATION THERAPY
     Dosage: UNK
     Route: 048

REACTIONS (4)
  - Dizziness [Recovering/Resolving]
  - Palpitations [Recovering/Resolving]
  - Anxiety [Not Recovered/Not Resolved]
  - Presyncope [Recovered/Resolved]

NARRATIVE: CASE EVENT DATE: 201808
